FAERS Safety Report 14779646 (Version 2)
Quarter: 2018Q2

REPORT INFORMATION
  Report Type: Spontaneous
  Country: US (occurrence: US)
  Receive Date: 20180419
  Receipt Date: 20180528
  Transmission Date: 20180711
  Serious: No
  Sender: FDA-Public Use
  Company Number: US-ELI_LILLY_AND_COMPANY-US201803010662

PATIENT
  Age: 60 Year
  Sex: Male

DRUGS (4)
  1. METFORMIN [Concomitant]
     Active Substance: METFORMIN HYDROCHLORIDE
     Indication: DIABETES MELLITUS
     Dosage: 1000 MG, BID
     Route: 065
  2. BASAGLAR [Suspect]
     Active Substance: INSULIN GLARGINE
     Indication: DIABETES MELLITUS
     Dosage: 110 U, BID
     Route: 058
     Dates: start: 20180223
  3. BASAGLAR [Suspect]
     Active Substance: INSULIN GLARGINE
     Dosage: 110 U, BID
     Route: 058
  4. NOVOLOG [Concomitant]
     Active Substance: INSULIN ASPART
     Indication: DIABETES MELLITUS
     Dosage: 60 U, TID
     Route: 065

REACTIONS (7)
  - Wrong dose [Recovering/Resolving]
  - Pruritus [Unknown]
  - Dizziness [Recovering/Resolving]
  - Intentional product misuse [Unknown]
  - Blood glucose abnormal [Unknown]
  - Asthenia [Unknown]
  - Inappropriate schedule of drug administration [Unknown]

NARRATIVE: CASE EVENT DATE: 20180223
